FAERS Safety Report 23771502 (Version 1)
Quarter: 2024Q2

REPORT INFORMATION
  Report Type: Spontaneous
  Country: BE (occurrence: BE)
  Receive Date: 20240423
  Receipt Date: 20240423
  Transmission Date: 20240716
  Serious: Yes (Other)
  Sender: FDA-Public Use
  Company Number: BE-FAMHP-DHH-N2024-121599

PATIENT
  Age: 54 Year
  Sex: Female
  Weight: 88 kg

DRUGS (1)
  1. ATORVASTATIN CALCIUM [Suspect]
     Active Substance: ATORVASTATIN CALCIUM
     Indication: Blood cholesterol
     Dosage: 1/DAY S^MORGENS
     Route: 048
     Dates: start: 20100127, end: 20231005

REACTIONS (6)
  - Hepatitis [Recovering/Resolving]
  - Loss of personal independence in daily activities [Recovering/Resolving]
  - Movement disorder [Recovering/Resolving]
  - Mobility decreased [Recovering/Resolving]
  - Myositis [Recovering/Resolving]
  - Gait disturbance [Recovering/Resolving]

NARRATIVE: CASE EVENT DATE: 20230927
